FAERS Safety Report 5788092-9 (Version None)
Quarter: 2008Q2

REPORT INFORMATION
  Report Type: 
  Country: None (occurrence: None)
  Receive Date: 20080625
  Receipt Date: 20080612
  Transmission Date: 20081010
  Serious: Yes (Other)
  Sender: FDA-Public Use
  Company Number: BR-GENENTECH-263149

PATIENT
  Age: 80 Year
  Sex: Male

DRUGS (5)
  1. MABTHERA [Suspect]
     Indication: LYMPHOMA
     Route: 042
  2. DOXORUBICIN HCL [Suspect]
     Indication: LYMPHOMA
  3. CYCLOPHOSPHAMIDE [Concomitant]
     Indication: LYMPHOMA
  4. VINCRISTINE [Concomitant]
     Indication: LYMPHOMA
  5. PREDNISONE [Concomitant]
     Indication: LYMPHOMA

REACTIONS (1)
  - RESPIRATORY ARREST [None]
